FAERS Safety Report 10522017 (Version 4)
Quarter: 2014Q4

REPORT INFORMATION
  Report Type: Report from Study
  Country: JP (occurrence: JP)
  Receive Date: 20141016
  Receipt Date: 20141104
  Transmission Date: 20150528
  Serious: Yes (Hospitalization)
  Sender: FDA-Public Use
  Company Number: JP-009507513-1410JPN007201

PATIENT
  Age: 60 Year
  Sex: Male
  Weight: 32.4 kg

DRUGS (14)
  1. FAMOTIDINE. [Concomitant]
     Active Substance: FAMOTIDINE
     Indication: GASTRITIS
     Dosage: TOTAL DAILY DOSE: 20 MG, ONCE
     Route: 048
     Dates: start: 20140829
  2. STREPTOCOCCUS FAECALIS [Concomitant]
     Active Substance: STREPTOCOCCUS FAECALIS
     Indication: DIARRHOEA
     Dosage: TOTAL DAILY DOSE 3 G, TID
     Route: 048
     Dates: start: 20140824
  3. CLOSTRIDIUM BUTYRICUM [Concomitant]
     Active Substance: CLOSTRIDIUM BUTYRICUM SPORES STRAIN M-55
     Indication: DIARRHOEA
     Dosage: TOTAL DAILY DOSE 60 MG, TID
     Route: 048
     Dates: start: 20140922
  4. MICAFUNGIN SODIUM [Concomitant]
     Active Substance: MICAFUNGIN SODIUM
     Indication: BRONCHOPULMONARY ASPERGILLOSIS
     Dosage: TOTAL DAILY DOSE 150 MG, ONCE
     Route: 042
     Dates: start: 20130822, end: 20140912
  5. DEXCHLORPHENIRAMINE MALEATE. [Concomitant]
     Active Substance: DEXCHLORPHENIRAMINE MALEATE
     Indication: RASH
     Dosage: TOTAL DAILY DOSE 2 MG, ONCE
     Route: 048
     Dates: start: 20131115
  6. POSACONAZOLE [Suspect]
     Active Substance: POSACONAZOLE
     Indication: SYSTEMIC MYCOSIS
     Dosage: UNK
     Route: 048
  7. LEVOCETIRIZINE DIHYDROCHLORIDE. [Concomitant]
     Active Substance: LEVOCETIRIZINE DIHYDROCHLORIDE
     Indication: RASH
     Dosage: TOTAL DAILY DOSE: 10 MG, BID
     Route: 048
     Dates: start: 20130913
  8. ISOSORBIDE DINITRATE. [Concomitant]
     Active Substance: ISOSORBIDE DINITRATE
     Indication: PULMONARY HYPERTENSION
     Dosage: TOTAL DAILY DOSE: 40 MG, ONCE
     Route: 003
     Dates: start: 20140630
  9. KANAMYCIN SULFATE [Concomitant]
     Active Substance: KANAMYCIN SULFATE
     Indication: ATYPICAL MYCOBACTERIAL INFECTION
     Dosage: TOTAL DAILY DOSE: 750 MG,UNK
     Route: 042
     Dates: start: 20130913
  10. SOLDEM 3A [Concomitant]
     Active Substance: CARBOHYDRATES\POTASSIUM CHLORIDE\SODIUM CHLORIDE\SODIUM LACTATE
     Indication: DECREASED APPETITE
     Dosage: TOTAL DAILY DOSE 200 ML, ONCE
     Route: 042
     Dates: start: 20140922, end: 20140924
  11. ITRACONAZOLE. [Concomitant]
     Active Substance: ITRACONAZOLE
     Indication: BRONCHOPULMONARY ASPERGILLOSIS
     Dosage: TOTAL DAILY DOSE 15 ML, ONCE
     Route: 048
     Dates: start: 20140627, end: 20140916
  12. ETHAMBUTOL HYDROCHLORIDE. [Concomitant]
     Active Substance: ETHAMBUTOL HYDROCHLORIDE
     Indication: ATYPICAL MYCOBACTERIAL INFECTION
     Dosage: TOTAL DAILY DOSE: 500 MG, ONCE
     Route: 048
     Dates: start: 20130917
  13. SITAFLOXACIN [Concomitant]
     Active Substance: SITAFLOXACIN
     Indication: ATYPICAL MYCOBACTERIAL INFECTION
     Dosage: TOTAL DAILY DOSE: 100 MG, ONCE
     Route: 048
     Dates: start: 20131115
  14. LACTEC G [Concomitant]
     Indication: DECREASED APPETITE
     Dosage: TOTAL DAILY DOSE: 500 ML, ONCE
     Route: 042
     Dates: start: 20140924, end: 20140924

REACTIONS (2)
  - Bronchopulmonary aspergillosis [Recovered/Resolved]
  - Pneumonia [Recovered/Resolved]

NARRATIVE: CASE EVENT DATE: 20140924
